FAERS Safety Report 25356501 (Version 1)
Quarter: 2025Q2

REPORT INFORMATION
  Report Type: Spontaneous
  Country: JP (occurrence: JP)
  Receive Date: 20250526
  Receipt Date: 20250526
  Transmission Date: 20250716
  Serious: Yes (Death)
  Sender: MERCK SHARP & DOHME LLC
  Company Number: JP-009507513-2287549

PATIENT
  Age: 89 Year
  Sex: Female

DRUGS (1)
  1. PEMBROLIZUMAB [Suspect]
     Active Substance: PEMBROLIZUMAB
     Indication: Colon cancer stage IV

REACTIONS (5)
  - Acute kidney injury [Fatal]
  - Immune-mediated myasthenia gravis [Fatal]
  - Immune-mediated myositis [Fatal]
  - Immune-mediated hepatic disorder [Fatal]
  - Multi-organ disorder [Fatal]
